FAERS Safety Report 21342114 (Version 1)
Quarter: 2022Q3

REPORT INFORMATION
  Report Type: Spontaneous
  Country: US (occurrence: None)
  Receive Date: 20220915
  Receipt Date: 20220915
  Transmission Date: 20221027
  Serious: Yes (Death)
  Sender: FDA-Public Use
  Company Number: None

PATIENT
  Age: 80 Year
  Sex: Male
  Weight: 81.65 kg

DRUGS (16)
  1. CAPECITABINE [Suspect]
     Active Substance: CAPECITABINE
     Indication: Colon cancer
     Dosage: OTHER FREQUENCY : AM;?OTHER ROUTE : 14 D ON, 7 D OFF;?
     Route: 050
     Dates: start: 202207
  2. CAPECITABINE [Suspect]
     Active Substance: CAPECITABINE
     Dosage: OTHER FREQUENCY : PM;?OTHER ROUTE : 14 D ON, 7 D OFF;?
     Route: 050
     Dates: start: 202207
  3. ASPIRIN [Concomitant]
     Active Substance: ASPIRIN
  4. CLOPIDOGREL [Concomitant]
     Active Substance: CLOPIDOGREL BISULFATE
  5. FENTANYL [Concomitant]
     Active Substance: FENTANYL
  6. GABAPENTIN [Concomitant]
     Active Substance: GABAPENTIN
  7. HYDROCHLOROTHIAZIDE [Concomitant]
     Active Substance: HYDROCHLOROTHIAZIDE
  8. LATANOPROST [Concomitant]
     Active Substance: LATANOPROST
  9. METFORMIN [Concomitant]
     Active Substance: METFORMIN HYDROCHLORIDE
  10. METOPROLOL [Concomitant]
     Active Substance: METOPROLOL
  11. NIFEDIPINE [Concomitant]
     Active Substance: NIFEDIPINE
  12. OMEPRAZOLE [Concomitant]
     Active Substance: OMEPRAZOLE
  13. PREDNISONE [Concomitant]
     Active Substance: PREDNISONE
  14. RHOPRESSA [Concomitant]
     Active Substance: NETARSUDIL MESYLATE
  15. Timolol (Ophthalmic) [Concomitant]
  16. TRAMADOL [Concomitant]
     Active Substance: TRAMADOL

REACTIONS (1)
  - Death [None]

NARRATIVE: CASE EVENT DATE: 20220902
